FAERS Safety Report 11293342 (Version 3)
Quarter: 2016Q1

REPORT INFORMATION
  Report Type: Spontaneous
  Country: PT (occurrence: PT)
  Receive Date: 20150722
  Receipt Date: 20160315
  Transmission Date: 20160525
  Serious: Yes (Other)
  Sender: FDA-Public Use
  Company Number: PT-ASTRAZENECA-2015SE58917

PATIENT
  Age: 67 Year
  Sex: Female

DRUGS (13)
  1. OMEPRAZOLE. [Concomitant]
     Active Substance: OMEPRAZOLE
     Indication: PRODUCT USED FOR UNKNOWN INDICATION
     Route: 048
  2. VIARTRIL S [Concomitant]
     Indication: MACULAR DEGENERATION
     Route: 048
     Dates: start: 2012
  3. OCULOTECT [Concomitant]
     Indication: PRODUCT USED FOR UNKNOWN INDICATION
     Route: 065
  4. OMEGA-3 ACIDS [Concomitant]
     Active Substance: OMEGA-3 FATTY ACIDS
  5. VITAMINS NOS [Concomitant]
     Active Substance: VITAMINS
     Route: 048
  6. VIARTRIL S [Concomitant]
     Indication: OSTEOARTHRITIS
     Route: 048
     Dates: start: 2012
  7. VIARTRIL S [Concomitant]
     Indication: PRODUCT USED FOR UNKNOWN INDICATION
     Route: 048
     Dates: start: 2012
  8. OCULOTECT [Concomitant]
     Indication: MACULAR DEGENERATION
     Route: 065
  9. PROVIDONE [Concomitant]
     Indication: EYE DISORDER
     Dosage: 50MG/ML
  10. IRESSA [Suspect]
     Active Substance: GEFITINIB
     Indication: LUNG ADENOCARCINOMA
     Route: 048
     Dates: start: 20150210
  11. MINERALS NOS [Concomitant]
     Active Substance: MINERALS
  12. ATACAND [Concomitant]
     Active Substance: CANDESARTAN CILEXETIL
     Indication: HYPERTENSION
     Route: 048
     Dates: start: 2012
  13. LUTEIN [Concomitant]
     Active Substance: LUTEIN

REACTIONS (7)
  - Growth of eyelashes [Not Recovered/Not Resolved]
  - Gingival bleeding [Not Recovered/Not Resolved]
  - Dry eye [Recovered/Resolved]
  - Alopecia [Not Recovered/Not Resolved]
  - Corneal erosion [Not Recovered/Not Resolved]
  - Dry mouth [Not Recovered/Not Resolved]
  - Hair growth abnormal [Not Recovered/Not Resolved]

NARRATIVE: CASE EVENT DATE: 2015
